FAERS Safety Report 7843725-8 (Version None)
Quarter: 2011Q4

REPORT INFORMATION
  Report Type: 
  Country: None (occurrence: None)
  Receive Date: 20111025
  Receipt Date: 20111020
  Transmission Date: 20120403
  Serious: Yes (Other)
  Sender: FDA-Public Use
  Company Number: PT-ROCHE-1006296

PATIENT
  Sex: Female
  Weight: 46 kg

DRUGS (2)
  1. ZOLEDRONIC ACID [Concomitant]
     Route: 042
     Dates: start: 20101001
  2. XELODA [Suspect]
     Indication: BREAST CANCER
     Route: 048
     Dates: start: 20110601, end: 20110711

REACTIONS (1)
  - EXTRAOCULAR MUSCLE PARESIS [None]
